FAERS Safety Report 4760013-7 (Version None)
Quarter: 2005Q3

REPORT INFORMATION
  Report Type: 
  Country: None (occurrence: None)
  Receive Date: 20050831
  Receipt Date: 20050831
  Transmission Date: 20060218
  Serious: Yes (Other)
  Sender: FDA-Public Use
  Company Number: None

PATIENT
  Age: 24 Year
  Sex: Female

DRUGS (2)
  1. PPD [Suspect]
     Dosage: ID (L) F/A
     Route: 023
     Dates: start: 20050824
  2. BIRTH CONTROL [Concomitant]

REACTIONS (4)
  - APPLICATION SITE ERYTHEMA [None]
  - PYREXIA [None]
  - RASH PRURITIC [None]
  - RESPIRATORY DISORDER [None]
